FAERS Safety Report 11287437 (Version 1)
Quarter: 2015Q3

REPORT INFORMATION
  Report Type: Spontaneous
  Country: BR (occurrence: BR)
  Receive Date: 20150721
  Receipt Date: 20150721
  Transmission Date: 20151125
  Serious: Yes (Hospitalization)
  Sender: FDA-Public Use
  Company Number: BR-ROCHE-1609974

PATIENT
  Sex: Female
  Weight: 36 kg

DRUGS (6)
  1. OMEPRAZOLE. [Concomitant]
     Active Substance: OMEPRAZOLE
  2. RIVOTRIL [Suspect]
     Active Substance: CLONAZEPAM
     Indication: INSOMNIA
     Route: 065
     Dates: start: 2014
  3. DIPYRONE [Concomitant]
     Active Substance: DIPYRONE
     Indication: PAIN
  4. RANITIDINE [Concomitant]
     Active Substance: RANITIDINE\RANITIDINE HYDROCHLORIDE
     Indication: GASTRIC DISORDER
  5. TRAMAL [Concomitant]
     Active Substance: TRAMADOL
  6. MORPHINE [Concomitant]
     Active Substance: MORPHINE
     Indication: NEOPLASM MALIGNANT

REACTIONS (3)
  - Underweight [Not Recovered/Not Resolved]
  - Malnutrition [Not Recovered/Not Resolved]
  - Malignant neoplasm progression [Unknown]
